FAERS Safety Report 7367644-9 (Version None)
Quarter: 2011Q1

REPORT INFORMATION
  Report Type: 
  Country: None (occurrence: None)
  Receive Date: 20110322
  Receipt Date: 20100908
  Transmission Date: 20110831
  Serious: Yes (Hospitalization, Other)
  Sender: FDA-Public Use
  Company Number: US-BAYER-201028187NA

PATIENT
  Sex: Female
  Weight: 56.689 kg

DRUGS (12)
  1. PEPCID [Concomitant]
     Dosage: UNK
     Dates: start: 20071031
  2. YAZ [Suspect]
     Indication: ACNE
  3. YAZ [Suspect]
     Indication: CONTRACEPTION
     Dosage: UNK UNK, QD
     Route: 048
     Dates: start: 20060101, end: 20080101
  4. YAZ [Suspect]
     Indication: MENSTRUAL CYCLE MANAGEMENT
  5. YASMIN [Suspect]
     Indication: CONTRACEPTION
     Dosage: UNK
     Dates: start: 20060101, end: 20080101
  6. YASMIN [Suspect]
     Indication: MENSTRUAL CYCLE MANAGEMENT
  7. YAZ [Suspect]
     Indication: DYSMENORRHOEA
  8. YAZ [Suspect]
     Indication: PREMENSTRUAL SYNDROME
  9. CIPRO [Concomitant]
     Dosage: UNK
     Dates: start: 20071031
  10. YASMIN [Suspect]
     Indication: ACNE
  11. YASMIN [Suspect]
     Indication: PREMENSTRUAL SYNDROME
  12. YASMIN [Suspect]
     Indication: DYSMENORRHOEA

REACTIONS (6)
  - FOCAL NODULAR HYPERPLASIA [None]
  - ABDOMINAL PAIN [None]
  - CHOLELITHIASIS [None]
  - CHOLECYSTITIS CHRONIC [None]
  - HEPATIC NEOPLASM [None]
  - GALLBLADDER DISORDER [None]
